FAERS Safety Report 24060435 (Version 3)
Quarter: 2025Q2

REPORT INFORMATION
  Report Type: Spontaneous
  Country: JP (occurrence: JP)
  Receive Date: 20240708
  Receipt Date: 20250519
  Transmission Date: 20250717
  Serious: Yes (Hospitalization)
  Sender: CSL BEHRING
  Company Number: JP-BEH-2024174987

PATIENT
  Sex: Male

DRUGS (9)
  1. HIZENTRA [Suspect]
     Active Substance: HUMAN IMMUNOGLOBULIN G
     Indication: Product used for unknown indication
     Route: 058
     Dates: start: 202111
  2. POMALIDOMIDE [Concomitant]
     Active Substance: POMALIDOMIDE
     Indication: Plasma cell myeloma
     Dates: end: 202205
  3. POMALIDOMIDE [Concomitant]
     Active Substance: POMALIDOMIDE
     Dates: end: 202210
  4. POMALIDOMIDE [Concomitant]
     Active Substance: POMALIDOMIDE
  5. DEXAMETHASONE [Concomitant]
     Active Substance: DEXAMETHASONE
     Indication: Plasma cell myeloma
     Dates: end: 202205
  6. DEXAMETHASONE [Concomitant]
     Active Substance: DEXAMETHASONE
     Dates: end: 202210
  7. DEXAMETHASONE [Concomitant]
     Active Substance: DEXAMETHASONE
  8. ELOTUZUMAB [Concomitant]
     Active Substance: ELOTUZUMAB
     Indication: Plasma cell myeloma
     Dates: end: 202210
  9. DARATUMUMAB [Concomitant]
     Active Substance: DARATUMUMAB
     Indication: Plasma cell myeloma

REACTIONS (3)
  - Pneumonia [Unknown]
  - COVID-19 [Unknown]
  - Influenza [Unknown]

NARRATIVE: CASE EVENT DATE: 20211101
